FAERS Safety Report 6417099-3 (Version None)
Quarter: 2009Q4

REPORT INFORMATION
  Report Type: 
  Country: None (occurrence: None)
  Receive Date: 20091028
  Receipt Date: 20091022
  Transmission Date: 20100525
  Serious: Yes (Other)
  Sender: FDA-Public Use
  Company Number: US-ALLERGAN-0900156US

PATIENT
  Sex: Female

DRUGS (2)
  1. OPTIVE [Suspect]
     Indication: DRY EYE
     Route: 047
  2. REFRESH TEARS [Suspect]
     Indication: DRY EYE
     Route: 047

REACTIONS (2)
  - ABORTION SPONTANEOUS [None]
  - PREGNANCY [None]
